FAERS Safety Report 18682665 (Version 1)
Quarter: 2020Q4

REPORT INFORMATION
  Report Type: Spontaneous
  Country: US (occurrence: US)
  Receive Date: 20201229
  Receipt Date: 20201229
  Transmission Date: 20210114
  Serious: Yes (Life-Threatening)
  Sender: FDA-Public Use
  Company Number: None

PATIENT

DRUGS (1)
  1. PALIPERIDONE ER [Suspect]
     Active Substance: PALIPERIDONE

REACTIONS (5)
  - Poor quality sleep [None]
  - Suicidal ideation [None]
  - Anxiety [None]
  - Aggression [None]
  - Anger [None]

NARRATIVE: CASE EVENT DATE: 20201225
